FAERS Safety Report 21437719 (Version 1)
Quarter: 2022Q4

REPORT INFORMATION
  Report Type: Spontaneous
  Country: US (occurrence: US)
  Receive Date: 20221011
  Receipt Date: 20221011
  Transmission Date: 20230112
  Serious: Yes (Other)
  Sender: FDA-Public Use
  Company Number: US-STRIDES ARCOLAB LIMITED-2022SP013022

PATIENT

DRUGS (4)
  1. RANITIDINE [Suspect]
     Active Substance: RANITIDINE
     Indication: Product used for unknown indication
     Dosage: UNK (PRESCRIPTION-RANITIDINE)
     Route: 065
  2. RANITIDINE [Suspect]
     Active Substance: RANITIDINE
     Dosage: UNK (OVER THE COUNTER-RANITIDINE)
     Route: 065
  3. RANITIDINE [Suspect]
     Active Substance: RANITIDINE
     Dosage: UNK (PRESCRIPTION-ZANTAC)
     Route: 065
  4. RANITIDINE [Suspect]
     Active Substance: RANITIDINE
     Dosage: UNK (OVER THE COUNTER-ZANTAC)
     Route: 065

REACTIONS (1)
  - Renal cancer [Unknown]
